FAERS Safety Report 21129167 (Version 2)
Quarter: 2022Q4

REPORT INFORMATION
  Report Type: Report from Study
  Country: US (occurrence: US)
  Receive Date: 20220725
  Receipt Date: 20221104
  Transmission Date: 20230113
  Serious: No
  Sender: FDA-Public Use
  Company Number: US-SUNOVION-2022SUN002113

PATIENT
  Age: 65 Year
  Sex: Male

DRUGS (1)
  1. KYNMOBI [Suspect]
     Active Substance: APOMORPHINE HYDROCHLORIDE
     Dosage: 15 MG
     Route: 060
     Dates: start: 20220602

REACTIONS (4)
  - Blood pressure orthostatic decreased [Unknown]
  - Lip dry [Unknown]
  - Dizziness [Recovered/Resolved]
  - Cheilitis [Unknown]

NARRATIVE: CASE EVENT DATE: 20220712
